FAERS Safety Report 5072518-2 (Version None)
Quarter: 2006Q3

REPORT INFORMATION
  Report Type: 
  Country: None (occurrence: None)
  Receive Date: 20060801
  Receipt Date: 20060720
  Transmission Date: 20061208
  Serious: Yes (Other)
  Sender: FDA-Public Use
  Company Number: US200603003503

PATIENT
  Sex: Male
  Weight: 77.1 kg

DRUGS (5)
  1. ZYPREXA [Suspect]
     Dosage: SEE IMAGE
     Dates: start: 19770301
  2. SEROQUEL [Concomitant]
  3. RISPERIDONE [Concomitant]
  4. LITHIUM (LITHIUM) [Concomitant]
  5. PROPANOLOL (PROPANOLOL) [Concomitant]

REACTIONS (4)
  - HEPATITIS VIRAL [None]
  - PANCREATITIS [None]
  - PRESCRIBED OVERDOSE [None]
  - VISION BLURRED [None]
